FAERS Safety Report 6570337-9 (Version None)
Quarter: 2010Q1

REPORT INFORMATION
  Report Type: 
  Country: None (occurrence: None)
  Receive Date: 20100129
  Receipt Date: 20100120
  Transmission Date: 20100710
  Serious: Yes (Other)
  Sender: FDA-Public Use
  Company Number: 10-024

PATIENT
  Age: 47 Year
  Sex: Female

DRUGS (1)
  1. ALEVE [Suspect]
     Dosage: 660 MG, DAILY; ORAL
     Route: 048
     Dates: start: 20100105

REACTIONS (4)
  - DIZZINESS [None]
  - EPISTAXIS [None]
  - INSOMNIA [None]
  - PSYCHOMOTOR HYPERACTIVITY [None]
